APPROVED DRUG PRODUCT: NITROGLYCERIN
Active Ingredient: NITROGLYCERIN
Strength: 0.4MG
Dosage Form/Route: TABLET;SUBLINGUAL
Application: A208191 | Product #002 | TE Code: AB
Applicant: DR REDDYS LABORATORIES INC
Approved: Aug 26, 2016 | RLD: No | RS: No | Type: RX